FAERS Safety Report 4565326-X (Version None)
Quarter: 2005Q1

REPORT INFORMATION
  Report Type: 
  Country: None (occurrence: None)
  Receive Date: 20050126
  Receipt Date: 20050114
  Transmission Date: 20050727
  Serious: Yes (Hospitalization)
  Sender: FDA-Public Use
  Company Number: US_991232467

PATIENT
  Age: 63 Year
  Sex: Female
  Weight: 50.8029 kg

DRUGS (3)
  1. GEMZAR [Suspect]
     Indication: LUNG ADENOCARCINOMA
     Dosage: 1000MG/M2 OTHER
     Route: 042
     Dates: start: 19991007, end: 19991104
  2. TAXOTERE [Concomitant]
  3. SOLU-MEDROL [Concomitant]

REACTIONS (5)
  - INTERSTITIAL LUNG DISEASE [None]
  - LICHEN PLANUS [None]
  - NEUTROPENIA [None]
  - PYREXIA [None]
  - RHINORRHOEA [None]
